FAERS Safety Report 6382781-3 (Version None)
Quarter: 2009Q3

REPORT INFORMATION
  Report Type: 
  Country: None (occurrence: None)
  Receive Date: 20090928
  Receipt Date: 20090928
  Transmission Date: 20100115
  Serious: Yes (Life-Threatening, Hospitalization, Disabling, Other)
  Sender: FDA-Public Use
  Company Number: None

PATIENT
  Age: 40 Year
  Sex: Female
  Weight: 68.0396 kg

DRUGS (2)
  1. LEXAPRO [Suspect]
     Indication: DEPRESSION
     Dosage: 10 MG 1 X DAY PO
     Route: 048
     Dates: start: 20071229, end: 20080930
  2. CAMPRAL [Suspect]
     Indication: ALCOHOL ABUSE
     Dosage: 333 MG 3 X DAY PO
     Route: 048
     Dates: start: 20080201, end: 20080715

REACTIONS (6)
  - AKATHISIA [None]
  - ALCOHOL USE [None]
  - ANXIETY [None]
  - BLOOD PRESSURE INCREASED [None]
  - DELUSION [None]
  - SUICIDE ATTEMPT [None]
